FAERS Safety Report 19237484 (Version 1)
Quarter: 2021Q2

REPORT INFORMATION
  Report Type: Spontaneous
  Country: US (occurrence: US)
  Receive Date: 20210510
  Receipt Date: 20210510
  Transmission Date: 20210717
  Serious: Yes (Other)
  Sender: FDA-Public Use
  Company Number: None

PATIENT
  Age: 25 Year
  Sex: Female
  Weight: 63 kg

DRUGS (2)
  1. MINASTRIN 24 FE [Concomitant]
     Active Substance: ETHINYL ESTRADIOL\NORETHINDRONE ACETATE
  2. ETONOGESTREL/ETHINYL ESTRADIOL [Suspect]
     Active Substance: ETHINYL ESTRADIOL\ETONOGESTREL
     Indication: CONTRACEPTION
     Dosage: ?          QUANTITY:1 SUPPOSITORY(IES);OTHER FREQUENCY:EVERY 3?4 WEEKS;?
     Route: 067
     Dates: start: 20210510, end: 20210510

REACTIONS (6)
  - Blood pressure decreased [None]
  - Abnormal dreams [None]
  - Cold sweat [None]
  - Dizziness [None]
  - Blood glucose decreased [None]
  - Gait disturbance [None]

NARRATIVE: CASE EVENT DATE: 20210510
